FAERS Safety Report 23314089 (Version 6)
Quarter: 2024Q1

REPORT INFORMATION
  Report Type: Spontaneous
  Country: US (occurrence: US)
  Receive Date: 20231219
  Receipt Date: 20240221
  Transmission Date: 20240409
  Serious: No
  Sender: FDA-Public Use
  Company Number: US-PFIZER INC-202300434321

PATIENT
  Age: 3 Year
  Sex: Male
  Weight: 12.7 kg

DRUGS (2)
  1. GENOTROPIN [Suspect]
     Active Substance: SOMATROPIN
     Indication: Septo-optic dysplasia
     Dosage: 0.5 MG, 1X/DAY
     Dates: start: 20230614
  2. LEVOTHYROXINE SODIUM [Concomitant]
     Active Substance: LEVOTHYROXINE SODIUM
     Indication: Thyroid disorder
     Dosage: 25 UG/ML, 1X/DAY
     Dates: start: 20231127

REACTIONS (6)
  - Incorrect dose administered by device [Unknown]
  - Off label use [Unknown]
  - Device delivery system issue [Unknown]
  - Device leakage [Unknown]
  - Device breakage [Unknown]
  - Device physical property issue [Unknown]
